FAERS Safety Report 8548045-4 (Version None)
Quarter: 2012Q3

REPORT INFORMATION
  Report Type: 
  Country: None (occurrence: None)
  Receive Date: 20120730
  Receipt Date: 20120719
  Transmission Date: 20120928
  Serious: Yes (Other)
  Sender: FDA-Public Use
  Company Number: BR-AMGEN-BRASP2012046417

PATIENT
  Age: 52 Year
  Sex: Female
  Weight: 82 kg

DRUGS (5)
  1. CHLOROTHIAZIDE [Concomitant]
     Dosage: UNK
  2. ALLOPURINOL [Concomitant]
     Dosage: UNK
  3. PIROXICAM [Concomitant]
     Dosage: UNK
  4. ATENOLOL [Concomitant]
     Dosage: UNK
  5. ENBREL [Suspect]
     Indication: RHEUMATOID ARTHRITIS
     Dosage: 50 MG, ONCE WEEKLY
     Route: 058
     Dates: start: 20120201, end: 20120610

REACTIONS (3)
  - JOINT PROSTHESIS USER [None]
  - APPLICATION SITE PAIN [None]
  - NEEDLE ISSUE [None]
